FAERS Safety Report 8052508-8 (Version None)
Quarter: 2012Q1

REPORT INFORMATION
  Report Type: 
  Country: None (occurrence: None)
  Receive Date: 20120118
  Receipt Date: 20120112
  Transmission Date: 20120608
  Serious: Yes (Other)
  Sender: FDA-Public Use
  Company Number: US-PFIZER INC-2012009862

PATIENT
  Sex: Female
  Weight: 72.562 kg

DRUGS (11)
  1. CELEXA [Concomitant]
     Dosage: UNK
  2. LYRICA [Suspect]
     Indication: NEUROPATHY PERIPHERAL
     Dosage: 100 MG, 2X/DAY
     Route: 048
     Dates: start: 20110201, end: 20111201
  3. NORCO [Suspect]
     Indication: MUSCULOSKELETAL PAIN
  4. REQUIP [Concomitant]
     Dosage: UNK
  5. NORCO [Suspect]
     Indication: NEUROPATHY PERIPHERAL
  6. NORCO [Suspect]
     Indication: HEADACHE
  7. NORCO [Suspect]
     Indication: PAIN
     Dosage: UNK
     Dates: start: 20111201
  8. NORCO [Suspect]
     Indication: FINGER AMPUTATION
  9. LOVENOX [Concomitant]
     Dosage: UNK
  10. LORAZEPAM [Concomitant]
     Dosage: UNK
  11. NORVASC [Concomitant]
     Dosage: UNK

REACTIONS (8)
  - HEADACHE [None]
  - INSOMNIA [None]
  - FINGER AMPUTATION [None]
  - NEUROPATHY PERIPHERAL [None]
  - PAIN [None]
  - MUSCULOSKELETAL PAIN [None]
  - MALAISE [None]
  - FEELING ABNORMAL [None]
